FAERS Safety Report 13111619 (Version 2)
Quarter: 2017Q1

REPORT INFORMATION
  Report Type: Report from Study
  Country: PL (occurrence: PL)
  Receive Date: 20170112
  Receipt Date: 20170207
  Transmission Date: 20170428
  Serious: Yes (Hospitalization)
  Sender: FDA-Public Use
  Company Number: PL-AMGEN-POLCT2017004754

PATIENT
  Age: 77 Year
  Sex: Male

DRUGS (14)
  1. CARFILZOMIB [Suspect]
     Active Substance: CARFILZOMIB
     Indication: PLASMA CELL MYELOMA
     Dosage: 51 MG, PER CHEMO REGIM
     Route: 042
     Dates: start: 20160621
  2. GABAPENTIN. [Concomitant]
     Active Substance: GABAPENTIN
     Dosage: 300 MG, UNK
     Route: 048
     Dates: start: 201506
  3. CONTROLOC [Concomitant]
     Active Substance: PANTOPRAZOLE SODIUM
     Dosage: 40 MG, UNK
     Route: 048
     Dates: start: 20131009
  4. ACARD [Concomitant]
     Active Substance: ASPIRIN
     Dosage: 75 MG, UNK
     Route: 048
     Dates: start: 20131011
  5. CARDURA [Concomitant]
     Active Substance: DOXAZOSIN MESYLATE
     Dosage: 4 MG, UNK
     Route: 048
     Dates: start: 20131011
  6. HYDROCHLOROTHIAZIDE. [Concomitant]
     Active Substance: HYDROCHLOROTHIAZIDE
     Dosage: 12.5 MG, UNK
     Route: 048
     Dates: start: 20131011
  7. AMLOZEK [Concomitant]
     Active Substance: AMLODIPINE BESYLATE
     Dosage: 5 MG, UNK
     Route: 048
     Dates: start: 1996
  8. ALLUPOL [Concomitant]
     Active Substance: ALLOPURINOL
     Dosage: 100 MG, UNK
     Route: 048
     Dates: start: 20151001
  9. NEUROLIPON [Concomitant]
     Dosage: 600 MG, UNK
     Route: 048
     Dates: start: 201506
  10. VIVACOR [Concomitant]
     Active Substance: BISOPROLOL FUMARATE
     Dosage: 6.25 MG, UNK
     Route: 048
     Dates: start: 1996
  11. HEVIRAN [Concomitant]
     Active Substance: ACYCLOVIR
     Dosage: 400 MG, UNK
     Route: 048
     Dates: start: 20150901
  12. PAMIDRONAT MEDAC [Concomitant]
     Dosage: 4 MG, UNK
     Route: 042
     Dates: start: 20131024
  13. PRESTARIUM [Concomitant]
     Active Substance: PERINDOPRIL
     Dosage: 2.5 MG, UNK
     Route: 048
     Dates: start: 1996
  14. DEXAMETHASONE. [Suspect]
     Active Substance: DEXAMETHASONE
     Indication: PLASMA CELL MYELOMA
     Dosage: 40 MG, PER CHEMO REGIM
     Route: 048
     Dates: start: 20160621

REACTIONS (1)
  - Pneumonia bacterial [Recovered/Resolved]

NARRATIVE: CASE EVENT DATE: 20170108
